FAERS Safety Report 20501880 (Version 1)
Quarter: 2022Q1

REPORT INFORMATION
  Report Type: Spontaneous
  Country: US (occurrence: US)
  Receive Date: 20220222
  Receipt Date: 20220222
  Transmission Date: 20220423
  Serious: No
  Sender: FDA-Public Use
  Company Number: US-SA-SAC20220217000270

PATIENT
  Sex: Female

DRUGS (1)
  1. DUPIXENT [Suspect]
     Active Substance: DUPILUMAB
     Indication: Asthma
     Dosage: 300 MG, QOW
     Route: 058

REACTIONS (7)
  - Asthma [Unknown]
  - Abdominal discomfort [Unknown]
  - Hiatus hernia [Unknown]
  - Illness [Unknown]
  - Hypersensitivity [Unknown]
  - Product dose omission issue [Unknown]
  - Product use issue [Unknown]
